FAERS Safety Report 12616567 (Version 1)
Quarter: 2016Q3

REPORT INFORMATION
  Report Type: Spontaneous
  Country: US (occurrence: US)
  Receive Date: 20160802
  Receipt Date: 20160802
  Transmission Date: 20161109
  Serious: No
  Sender: FDA-Public Use
  Company Number: US-IMPAX LABORATORIES, INC-2015AMD00175

PATIENT
  Sex: Female

DRUGS (2)
  1. ALBENDAZOLE [Suspect]
     Active Substance: ALBENDAZOLE
     Indication: INFECTION PARASITIC
     Dosage: 400 MG, ONCE
     Route: 048
     Dates: start: 201503, end: 201504
  2. ALBENDAZOLE [Suspect]
     Active Substance: ALBENDAZOLE
     Dosage: 400 MG, 2X/DAY
     Route: 048
     Dates: start: 20150720, end: 201508

REACTIONS (4)
  - Drug ineffective [Not Recovered/Not Resolved]
  - Eye discharge [Unknown]
  - Dry eye [Unknown]
  - Sebaceous gland disorder [Unknown]

NARRATIVE: CASE EVENT DATE: 201503
